FAERS Safety Report 6703309-1 (Version None)
Quarter: 2010Q2

REPORT INFORMATION
  Report Type: 
  Country: None (occurrence: None)
  Receive Date: 20100430
  Receipt Date: 20100422
  Transmission Date: 20101027
  Serious: Yes (Hospitalization)
  Sender: FDA-Public Use
  Company Number: CH-ASTRAZENECA-2010SE18084

PATIENT
  Age: 84 Year
  Sex: Female

DRUGS (8)
  1. METOPROLOL SUCCINATE [Suspect]
     Route: 048
     Dates: end: 20100322
  2. DIGOXIN [Suspect]
     Route: 048
     Dates: end: 20100322
  3. CORDARON [Suspect]
     Route: 048
     Dates: start: 20100226, end: 20100322
  4. SINTROM [Concomitant]
  5. ASPIRIN [Concomitant]
  6. DIOVAN HCT [Concomitant]
  7. CEDUR [Concomitant]
  8. PANTOZOL [Concomitant]

REACTIONS (4)
  - ATRIOVENTRICULAR BLOCK [None]
  - BRADYCARDIA [None]
  - MEDICATION ERROR [None]
  - SYNCOPE [None]
